FAERS Safety Report 7390230-1 (Version None)
Quarter: 2011Q2

REPORT INFORMATION
  Report Type: 
  Country: None (occurrence: None)
  Receive Date: 20110401
  Receipt Date: 20110318
  Transmission Date: 20111010
  Serious: Yes (Hospitalization, Other)
  Sender: FDA-Public Use
  Company Number: PHHO2010FR18969

PATIENT
  Sex: Male
  Weight: 63 kg

DRUGS (14)
  1. COLCHIMAX [Interacting]
     Indication: AMYLOIDOSIS
     Dosage: UNK
     Route: 048
     Dates: start: 20101111, end: 20101206
  2. SANDIMMUNE [Suspect]
     Indication: RENAL TRANSPLANT
     Dosage: 1.5 MG
     Route: 048
     Dates: start: 20101201, end: 20101206
  3. SOLUPRED [Concomitant]
     Dosage: 10 MG
     Route: 048
     Dates: start: 20101206
  4. ALUMINUM HYDROXIDE AND MAGNESIUM TRISILICATE [Concomitant]
  5. SOLUPRED [Concomitant]
     Indication: RENAL TRANSPLANT
     Dosage: 70 MG
     Route: 048
     Dates: start: 20101109, end: 20101206
  6. NEORAL [Interacting]
     Indication: RENAL TRANSPLANT
     Dosage: 280 MG, UNK
     Route: 048
     Dates: start: 20101109, end: 20101201
  7. CELLCEPT [Concomitant]
     Indication: RENAL TRANSPLANT
     Dosage: 3 G
     Route: 048
     Dates: start: 20101108, end: 20101202
  8. SPECIAFOLDINE [Concomitant]
  9. BACTRIM [Concomitant]
  10. SANDIMMUNE [Suspect]
     Dosage: 0.75 MG
     Route: 048
     Dates: start: 20101207, end: 20101201
  11. CELLCEPT [Concomitant]
     Dosage: 1.5 G
     Route: 048
     Dates: start: 20101202
  12. PROGRAF [Concomitant]
  13. MOTILIUM [Concomitant]
  14. DEBRIDAT [Concomitant]

REACTIONS (10)
  - ASTHENIA [None]
  - MOTOR DYSFUNCTION [None]
  - DRUG INTERACTION [None]
  - RHABDOMYOLYSIS [None]
  - MYALGIA [None]
  - NEUROMYOPATHY [None]
  - AREFLEXIA [None]
  - MALNUTRITION [None]
  - INFLAMMATION [None]
  - GAIT DISTURBANCE [None]
